FAERS Safety Report 9806165 (Version 2)
Quarter: 2014Q2

REPORT INFORMATION
  Report Type: Report from Study
  Country: DE (occurrence: NL)
  Receive Date: 20140109
  Receipt Date: 20140429
  Transmission Date: 20141212
  Serious: Yes (Death, Other)
  Sender: FDA-Public Use
  Company Number: DE-ACTELION-A-NJ2014-93362

PATIENT
  Age: 63 Year
  Sex: Male

DRUGS (11)
  1. VENTAVIS [Suspect]
     Indication: PULMONARY ARTERIAL HYPERTENSION
     Dosage: 5 MG, 6 TIMES A DAY
     Route: 055
     Dates: start: 20130926
  2. ALENDRONATE SODIUM [Concomitant]
  3. ATORVASTATIN [Concomitant]
  4. CALCICHEW D3 [Concomitant]
  5. ESOMEPRAZOLE [Concomitant]
  6. FUROSEMIDE [Concomitant]
  7. LORATADINE [Concomitant]
  8. NAPROXEN [Concomitant]
  9. SPIRONOLACTON [Concomitant]
  10. VERAPAMIL [Concomitant]
  11. TRAMAL [Concomitant]

REACTIONS (5)
  - Death [Fatal]
  - Choking [Unknown]
  - Cardiac arrest [Unknown]
  - Dyspnoea [Unknown]
  - General physical health deterioration [Unknown]
